FAERS Safety Report 20754743 (Version 5)
Quarter: 2022Q3

REPORT INFORMATION
  Report Type: Report from Study
  Country: US (occurrence: US)
  Receive Date: 20220427
  Receipt Date: 20220831
  Transmission Date: 20221027
  Serious: Yes (Hospitalization, Other)
  Sender: FDA-Public Use
  Company Number: US-BIOVITRUM-2022US05512

PATIENT
  Sex: Female

DRUGS (3)
  1. KINERET [Suspect]
     Active Substance: ANAKINRA
     Indication: Rheumatoid arthritis
     Dates: start: 20190511
  2. KINERET [Suspect]
     Active Substance: ANAKINRA
     Dates: start: 20190511
  3. KINERET [Suspect]
     Active Substance: ANAKINRA
     Dates: start: 20190508

REACTIONS (5)
  - Foot deformity [Unknown]
  - Localised infection [Unknown]
  - Brain neoplasm benign [Unknown]
  - Seasonal allergy [Unknown]
  - Product dose omission issue [Unknown]
